FAERS Safety Report 4686384-8 (Version None)
Quarter: 2005Q2

REPORT INFORMATION
  Report Type: 
  Country: None (occurrence: None)
  Receive Date: 20050606
  Receipt Date: 20050525
  Transmission Date: 20051028
  Serious: Yes (Disabling)
  Sender: FDA-Public Use
  Company Number: 2005080728

PATIENT
  Sex: Female
  Weight: 61 kg

DRUGS (5)
  1. DOXORUBICIN HYDROCHLORIDE [Suspect]
     Indication: BREAST CANCER
     Dosage: (INTERVAL:  3 WEEKS), INTRAVENOUS
     Route: 042
     Dates: start: 20050401
  2. CYCLOPHOSPHAMIDE [Suspect]
     Indication: BREAST CANCER
     Dosage: (INTERVAL:  3 WEEKS), INTRAVENOUS
     Route: 042
     Dates: start: 20050401
  3. DEXAMETHASONE [Suspect]
     Indication: ILL-DEFINED DISORDER
     Dosage: (INTERVAL:  3 WEEKS),
     Dates: start: 20050401
  4. METOCLOPRAMIDE HYDROCHLORIDE [Suspect]
     Indication: VOMITING
     Dates: start: 20050401, end: 20050401
  5. CATAPRES [Concomitant]

REACTIONS (22)
  - ANOREXIA [None]
  - ANURIA [None]
  - ASTHENIA [None]
  - BURNS SECOND DEGREE [None]
  - CHEST PAIN [None]
  - CHILLS [None]
  - CHROMATURIA [None]
  - FAECES DISCOLOURED [None]
  - FEELING ABNORMAL [None]
  - FEELING COLD [None]
  - HYPERHIDROSIS [None]
  - JOINT STIFFNESS [None]
  - LOCAL SWELLING [None]
  - MALAISE [None]
  - MOVEMENT DISORDER [None]
  - NAIL DISORDER [None]
  - PAIN [None]
  - SKIN DISORDER [None]
  - SPINAL OSTEOARTHRITIS [None]
  - SWELLING [None]
  - SWELLING FACE [None]
  - TREMOR [None]
